FAERS Safety Report 17287149 (Version 1)
Quarter: 2020Q1

REPORT INFORMATION
  Report Type: Report from Study
  Country: None (occurrence: DE)
  Receive Date: 20200120
  Receipt Date: 20200120
  Transmission Date: 20200409
  Serious: Yes (Other)
  Sender: FDA-Public Use
  Company Number: DE-KADMON PHARMACEUTICALS, LLC-KAD-202001-01531

PATIENT
  Age: 48 Year
  Sex: Female

DRUGS (10)
  1. LANTUS [Concomitant]
     Active Substance: INSULIN GLARGINE
     Dosage: 22 IU
  2. PEGINTERFERON ALFA-2A. [Suspect]
     Active Substance: PEGINTERFERON ALFA-2A
     Indication: CHRONIC HEPATITIS C
     Dosage: 135 MCG
     Route: 058
     Dates: start: 20121211, end: 20131127
  3. MIRTAZAPINE. [Concomitant]
     Active Substance: MIRTAZAPINE
  4. RIBAVIRIN. [Suspect]
     Active Substance: RIBAVIRIN
     Indication: CHRONIC HEPATITIS C
     Dosage: 1200 MG
     Dates: start: 20121211, end: 20131127
  5. VIGANTOLETTEN [Concomitant]
     Active Substance: CHOLECALCIFEROL
  6. DEKRISTOL [Concomitant]
     Active Substance: CHOLECALCIFEROL
     Dates: start: 20130218
  7. L-THYROXINE [Concomitant]
     Active Substance: LEVOTHYROXINE
  8. PEGINTERFERON ALFA-2A. [Suspect]
     Active Substance: PEGINTERFERON ALFA-2A
     Dosage: 180 MCG
     Route: 058
     Dates: start: 20121211, end: 20131127
  9. ACTRAPID [Concomitant]
     Active Substance: INSULIN HUMAN
     Dosage: DAILY DOSE: 1
  10. PANTOPRAZOLE [Concomitant]
     Active Substance: PANTOPRAZOLE
     Dosage: 40 MG

REACTIONS (3)
  - Alopecia [Not Recovered/Not Resolved]
  - Sleep disorder [Not Recovered/Not Resolved]
  - Blood glucose fluctuation [Not Recovered/Not Resolved]

NARRATIVE: CASE EVENT DATE: 20130502
